FAERS Safety Report 6475709-9 (Version None)
Quarter: 2009Q4

REPORT INFORMATION
  Report Type: 
  Country: None (occurrence: None)
  Receive Date: 20091204
  Receipt Date: 20090105
  Transmission Date: 20100525
  Serious: No
  Sender: FDA-Public Use
  Company Number: US-AMGEN-KDL326846

PATIENT
  Sex: Male

DRUGS (9)
  1. ENBREL [Suspect]
     Indication: PSORIATIC ARTHROPATHY
     Dates: start: 20060101, end: 20080101
  2. ENBREL [Suspect]
     Indication: PSORIASIS
  3. HUMIRA [Suspect]
     Dates: start: 20050101
  4. METHOTREXATE [Concomitant]
  5. FELDENE [Concomitant]
  6. NAPROXEN SODIUM [Concomitant]
  7. FOLIC ACID [Concomitant]
  8. ALLOPURINOL [Concomitant]
  9. UNSPECIFIED ANTIHYPERTENSIVE AGENT [Concomitant]

REACTIONS (2)
  - DYSGEUSIA [None]
  - EAR DISCOMFORT [None]
